FAERS Safety Report 4874713-1 (Version None)
Quarter: 2006Q1

REPORT INFORMATION
  Report Type: 
  Country: None (occurrence: None)
  Receive Date: 20060106
  Receipt Date: 20050308
  Transmission Date: 20060701
  Serious: Yes (Hospitalization)
  Sender: FDA-Public Use
  Company Number: US-MERCK-0503USA01347

PATIENT
  Age: 43 Year
  Sex: Female
  Weight: 55 kg

DRUGS (1)
  1. VIOXX [Suspect]
     Indication: ARTHRITIS
     Route: 048
     Dates: start: 20020101, end: 20040901

REACTIONS (10)
  - ADVERSE EVENT [None]
  - CARDIAC DISORDER [None]
  - CONVULSION [None]
  - DRUG ABUSER [None]
  - FALL [None]
  - HEART RATE INCREASED [None]
  - LOSS OF CONSCIOUSNESS [None]
  - PALPITATIONS [None]
  - SYNCOPE [None]
  - WEIGHT DECREASED [None]
